FAERS Safety Report 13433630 (Version 1)
Quarter: 2017Q2

REPORT INFORMATION
  Report Type: Spontaneous
  Country: US (occurrence: US)
  Receive Date: 20170412
  Receipt Date: 20170412
  Transmission Date: 20170830
  Serious: No
  Sender: FDA-Public Use
  Company Number: US-TEVA-750334ACC

PATIENT
  Sex: Female
  Weight: 83.99 kg

DRUGS (3)
  1. MULTIVITAMIN [Concomitant]
     Active Substance: VITAMINS
  2. PLAN B ONE-STEP [Suspect]
     Active Substance: LEVONORGESTREL
     Indication: POST COITAL CONTRACEPTION
     Dates: start: 20170306, end: 20170306
  3. ST. JOHN^S WORT [Concomitant]
     Active Substance: ST. JOHN^S WORT
     Indication: DEPRESSION

REACTIONS (1)
  - Abdominal pain lower [Not Recovered/Not Resolved]
